FAERS Safety Report 10142825 (Version 1)
Quarter: 2014Q2

REPORT INFORMATION
  Report Type: Spontaneous
  Country: KR (occurrence: None)
  Receive Date: 20140428
  Receipt Date: 20140428
  Transmission Date: 20141212
  Serious: Yes (Hospitalization)
  Sender: FDA-Public Use
  Company Number: IMP_07611_2014

PATIENT
  Age: 6 Month
  Sex: Female

DRUGS (4)
  1. VALPROATE [Suspect]
     Indication: GENERALISED TONIC-CLONIC SEIZURE
  2. PHENOBARBITAL (PHENOBARBITAL) [Suspect]
     Indication: GENERALISED TONIC-CLONIC SEIZURE
     Dosage: DF
  3. LORAZEPAM [Concomitant]
  4. DIAZEPAM [Concomitant]

REACTIONS (5)
  - Hypogammaglobulinaemia [None]
  - Pancytopenia [None]
  - Iron deficiency anaemia [None]
  - Petechiae [None]
  - Anticonvulsant drug level increased [None]
